FAERS Safety Report 18888669 (Version 1)
Quarter: 2021Q1

REPORT INFORMATION
  Report Type: Spontaneous
  Country: ES (occurrence: ES)
  Receive Date: 20210212
  Receipt Date: 20210212
  Transmission Date: 20210420
  Serious: Yes (Hospitalization, Other)
  Sender: FDA-Public Use
  Company Number: NVSC2021ES031509

PATIENT
  Age: 63 Year
  Sex: Male

DRUGS (1)
  1. NILOTINIB [Suspect]
     Active Substance: NILOTINIB
     Indication: CHRONIC MYELOID LEUKAEMIA
     Dosage: 300 MG, Q12H
     Route: 065
     Dates: start: 201107

REACTIONS (7)
  - Ischaemia [Unknown]
  - Acute coronary syndrome [Unknown]
  - Stenosis [Unknown]
  - Pain [Unknown]
  - Peripheral artery occlusion [Unknown]
  - Intermittent claudication [Unknown]
  - Peripheral ischaemia [Unknown]

NARRATIVE: CASE EVENT DATE: 201303
